FAERS Safety Report 4323650-X (Version None)
Quarter: 2004Q1

REPORT INFORMATION
  Report Type: 
  Country: None (occurrence: None)
  Receive Date: 20040323
  Receipt Date: 20040312
  Transmission Date: 20041129
  Serious: Yes (Hospitalization, Other)
  Sender: FDA-Public Use
  Company Number: 163-20785-04030311

PATIENT
  Age: 43 Year
  Sex: Female

DRUGS (7)
  1. THALOMID [Suspect]
     Indication: SARCOMA
     Dosage: 400-600 MG, DAILY, ORAL
     Route: 048
     Dates: start: 20031027, end: 20040227
  2. ACTOS [Concomitant]
  3. LIPITOR [Concomitant]
  4. MVI (M.V.I.) [Concomitant]
  5. LISINOPRIL [Concomitant]
  6. OXYDOSE (OXYGEN) [Concomitant]
  7. HYDROXYZINE [Concomitant]

REACTIONS (3)
  - MALIGNANT NEOPLASM PROGRESSION [None]
  - PULMONARY OEDEMA [None]
  - SARCOMA [None]
